FAERS Safety Report 9874138 (Version 2)
Quarter: 2014Q1

REPORT INFORMATION
  Report Type: Spontaneous
  Country: US (occurrence: US)
  Receive Date: 20140206
  Receipt Date: 20140206
  Transmission Date: 20141002
  Serious: No
  Sender: FDA-Public Use
  Company Number: US-ACORDA-ACO_33391_2012

PATIENT
  Sex: Female

DRUGS (6)
  1. AMPYRA [Suspect]
     Dosage: 10 MG, BID
  2. AMPYRA [Suspect]
     Dosage: 10 MG, QD
  3. AMPYRA [Suspect]
     Dosage: 10 MG, BID
     Route: 048
  4. ATENOLOL [Concomitant]
     Indication: PRODUCT USED FOR UNKNOWN INDICATION
     Dosage: 50 MG, QD
     Route: 048
  5. HYDROCHLOROTHIAZIDE [Concomitant]
     Indication: PRODUCT USED FOR UNKNOWN INDICATION
     Dosage: 25 MG, QD
     Route: 048
  6. AMPYRA [Suspect]
     Indication: MULTIPLE SCLEROSIS
     Dosage: 10 MG, QD

REACTIONS (2)
  - Inappropriate schedule of drug administration [Unknown]
  - Insomnia [Recovered/Resolved]
